FAERS Safety Report 25720494 (Version 2)
Quarter: 2025Q3

REPORT INFORMATION
  Report Type: Spontaneous
  Country: EU (occurrence: EU)
  Receive Date: 20250825
  Receipt Date: 20250902
  Transmission Date: 20251021
  Serious: Yes (Other)
  Sender: AUROBINDO
  Company Number: EU-AUROBINDO-AUR-APL-2025-043094

PATIENT
  Age: 54 Year

DRUGS (6)
  1. DARUNAVIR [Interacting]
     Active Substance: DARUNAVIR
     Indication: Chronic obstructive pulmonary disease
     Route: 065
     Dates: start: 2016
  2. DARUNAVIR [Interacting]
     Active Substance: DARUNAVIR
     Indication: HIV infection
  3. COBICISTAT [Interacting]
     Active Substance: COBICISTAT
     Indication: Chronic obstructive pulmonary disease
     Route: 065
     Dates: start: 2016
  4. COBICISTAT [Interacting]
     Active Substance: COBICISTAT
     Indication: HIV infection
  5. FLUTICASONE\FORMOTEROL [Interacting]
     Active Substance: FLUTICASONE\FORMOTEROL
     Indication: Chronic obstructive pulmonary disease
     Route: 065
  6. FLUTICASONE\FORMOTEROL [Interacting]
     Active Substance: FLUTICASONE\FORMOTEROL
     Indication: HIV infection

REACTIONS (2)
  - Cushing^s syndrome [Unknown]
  - Drug interaction [Unknown]
